FAERS Safety Report 8015339-0 (Version None)
Quarter: 2011Q4

REPORT INFORMATION
  Report Type: 
  Country: None (occurrence: None)
  Receive Date: 20111223
  Receipt Date: 20111209
  Transmission Date: 20120403
  Serious: Yes (Other)
  Sender: FDA-Public Use
  Company Number: 022155

PATIENT
  Age: 74 Year
  Sex: Male

DRUGS (2)
  1. PEGAPTANIB SODIUM (PEGAPTANIB SODIUM) UNKNOWN [Suspect]
     Indication: AGE-RELATED MACULAR DEGENERATION
     Dosage: 0.3 MG, INTRAOUCLAR
     Route: 031
     Dates: start: 20081224, end: 20081224
  2. MOXIFLOXACIN HCL [Concomitant]

REACTIONS (1)
  - RETINAL PIGMENT EPITHELIAL TEAR [None]
